FAERS Safety Report 14652119 (Version 2)
Quarter: 2018Q2

REPORT INFORMATION
  Report Type: Spontaneous
  Country: ES (occurrence: ES)
  Receive Date: 20180318
  Receipt Date: 20180427
  Transmission Date: 20180711
  Serious: Yes (Life-Threatening, Hospitalization)
  Sender: FDA-Public Use
  Company Number: ES-ASTRAZENECA-2018SE33328

PATIENT
  Age: 74 Year
  Sex: Female
  Weight: 75.4 kg

DRUGS (6)
  1. PRITOR PLUS [Concomitant]
     Active Substance: TELMISARTAN
     Dosage: 40/12.5 MG 1 DF DAILY
     Route: 048
     Dates: start: 20140414
  2. EFFICIB [Concomitant]
     Active Substance: METFORMIN HYDROCHLORIDE\SITAGLIPTIN PHOSPHATE
     Indication: TYPE 2 DIABETES MELLITUS
     Dosage: 50/1000 MG 1 DF EVERY 12HRS
     Route: 048
     Dates: start: 20130107
  3. FORXIGA [Suspect]
     Active Substance: DAPAGLIFLOZIN
     Indication: TYPE 2 DIABETES MELLITUS
     Route: 048
     Dates: start: 20151221, end: 20170913
  4. DOXIUM [Concomitant]
     Active Substance: CALCIUM DOBESILATE
     Indication: DIABETIC EYE DISEASE
     Route: 048
     Dates: start: 20140812, end: 20170913
  5. SIMVASTATIN. [Concomitant]
     Active Substance: SIMVASTATIN
     Indication: HYPERCHOLESTEROLAEMIA
     Route: 048
     Dates: start: 20140414
  6. INSULATARD FLEXPEN [Concomitant]
     Active Substance: INSULIN HUMAN
     Indication: TYPE 2 DIABETES MELLITUS
     Dosage: 100 UI/ML 32IU EVERY 12 HRS
     Dates: start: 20170130, end: 20170904

REACTIONS (1)
  - Sepsis [Recovered/Resolved]

NARRATIVE: CASE EVENT DATE: 20170830
